FAERS Safety Report 12943488 (Version 2)
Quarter: 2017Q1

REPORT INFORMATION
  Report Type: Spontaneous
  Country: US (occurrence: US)
  Receive Date: 20161115
  Receipt Date: 20170313
  Transmission Date: 20170428
  Serious: Yes (Hospitalization, Other)
  Sender: FDA-Public Use
  Company Number: US-TEVA-709358USA

PATIENT
  Sex: Male

DRUGS (5)
  1. DURAGESIC [Concomitant]
     Active Substance: FENTANYL
     Dosage: EVERY 48
  2. OXYCODONE [Concomitant]
     Active Substance: OXYCODONE
     Dosage: FOUR TIMES A DAY
  3. FENTORA [Suspect]
     Active Substance: FENTANYL CITRATE
     Indication: PRODUCT USED FOR UNKNOWN INDICATION
     Route: 065
     Dates: start: 20050116, end: 20160301
  4. MSIR [Concomitant]
     Active Substance: MORPHINE SULFATE
     Dosage: TWO TABLETS FOUR TIMES A DAY
  5. DIAZEPAM. [Concomitant]
     Active Substance: DIAZEPAM
     Dosage: FOUR TIMES A DAY

REACTIONS (4)
  - Product use issue [Unknown]
  - Insurance issue [Unknown]
  - Detoxification [Unknown]
  - Coma [Unknown]
